FAERS Safety Report 17870450 (Version 1)
Quarter: 2020Q2

REPORT INFORMATION
  Report Type: Spontaneous
  Country: US (occurrence: US)
  Receive Date: 20200608
  Receipt Date: 20200608
  Transmission Date: 20200714
  Serious: Yes (Death, Other)
  Sender: FDA-Public Use
  Company Number: US-ROCHE-2615581

PATIENT
  Sex: Male

DRUGS (4)
  1. ALTEPLASE. [Suspect]
     Active Substance: ALTEPLASE
     Indication: THROMBOLYSIS
     Dosage: 50 MG INFUSION OVER 75 MINUTES (1 IN 1 ONCE)
     Route: 042
  2. VASOPRESSIN. [Concomitant]
     Active Substance: VASOPRESSIN
     Indication: ACUTE KIDNEY INJURY
     Route: 065
  3. NOREPINEPHRINE. [Concomitant]
     Active Substance: NOREPINEPHRINE
     Route: 065
  4. NOREPINEPHRINE. [Concomitant]
     Active Substance: NOREPINEPHRINE
     Dosage: 50 MCG/MIN
     Route: 065

REACTIONS (5)
  - Hypoxia [Unknown]
  - Death [Fatal]
  - Hypotension [Unknown]
  - Cardiac arrest [Unknown]
  - Cardiac ventricular thrombosis [Unknown]
